FAERS Safety Report 8397121-8 (Version None)
Quarter: 2012Q2

REPORT INFORMATION
  Report Type: 
  Country: None (occurrence: None)
  Receive Date: 20120530
  Receipt Date: 20120523
  Transmission Date: 20120825
  Serious: Yes (Other)
  Sender: FDA-Public Use
  Company Number: BR-ROCHE-1058412

PATIENT
  Sex: Female
  Weight: 68 kg

DRUGS (4)
  1. ARAVA [Concomitant]
  2. NAPROXEN [Concomitant]
  3. MABTHERA [Suspect]
     Indication: PRODUCT USED FOR UNKNOWN INDICATION
     Dates: start: 20100201
  4. PREDNISONE TAB [Concomitant]

REACTIONS (2)
  - OSTEOARTHRITIS [None]
  - NO ADVERSE EVENT [None]
